FAERS Safety Report 4486099-5 (Version None)
Quarter: 2004Q4

REPORT INFORMATION
  Report Type: 
  Country: None (occurrence: None)
  Receive Date: 20041021
  Receipt Date: 20041011
  Transmission Date: 20050328
  Serious: Yes (Life-Threatening, Hospitalization, Other)
  Sender: FDA-Public Use
  Company Number: HQWYE706312OCT04

PATIENT
  Age: 71 Year
  Sex: Female

DRUGS (14)
  1. INDERAL [Suspect]
     Dosage: 40 MG 1X PER 1 DAY ORAL
     Route: 048
     Dates: start: 20040804, end: 20040810
  2. CIPROFLOXACIN [Suspect]
     Indication: URINARY TRACT INFECTION
     Dosage: 1 G 1X PER 1 DAY
     Route: 048
     Dates: start: 20040809, end: 20040812
  3. SIRDALUD - SLOW RELEASE (TIZANIDINE HYDROCHLORIDE, ) [Suspect]
     Dosage: 4 MG 1X PER 1 DAY ORAL
     Route: 048
     Dates: end: 20040810
  4. SIRDALUD - SLOW RELEASE (TIZANIDINE HYDROCHLORIDE, ) [Suspect]
     Dosage: 4 MG 1X PER 1 DAY ORAL
     Route: 048
     Dates: start: 20040811
  5. ASPIRIN [Concomitant]
  6. COAPROVEL (IRBESARTAN/HYDROCHLOROTHIAZIDE) [Concomitant]
  7. SIMVASTATIN [Concomitant]
  8. OXAZEPAM [Concomitant]
  9. PHLEBODRIL (ASCORBIC ACID/HESPERIDIN METHYL CHALCONE/RUSCUS ACULEATUS) [Concomitant]
  10. TRAMADOL HCL [Concomitant]
  11. LITHIUM CARBONATE [Concomitant]
  12. GABAPENTIN [Concomitant]
  13. CELECOXIB (CELECOXIB) [Concomitant]
  14. TRIMIPRAMINE MALEATE [Concomitant]

REACTIONS (7)
  - BLOOD CREATININE INCREASED [None]
  - BRADYCARDIA [None]
  - DRUG INTERACTION [None]
  - ELECTROCARDIOGRAM QT PROLONGED [None]
  - HYPOTENSION [None]
  - LOSS OF CONSCIOUSNESS [None]
  - SINUS ARREST [None]
